FAERS Safety Report 4275318-6 (Version None)
Quarter: 2004Q1

REPORT INFORMATION
  Report Type: 
  Country: None (occurrence: None)
  Receive Date: 20040116
  Receipt Date: 20031209
  Transmission Date: 20041129
  Serious: Yes (Hospitalization)
  Sender: FDA-Public Use
  Company Number: ATO-03-0807

PATIENT
  Age: 75 Year
  Sex: Female
  Weight: 45.3597 kg

DRUGS (9)
  1. TRISENOX [Suspect]
     Indication: MYELODYSPLASTIC SYNDROME
     Dosage: 11.5 MG (0.25 MG/KG,5X/WK, 2WKS ON 2WKS OFF), IVI
     Route: 042
     Dates: start: 20031103, end: 20031106
  2. DARVOCET [Concomitant]
  3. PAXIL [Concomitant]
  4. VALIUM [Concomitant]
  5. ASPIRIN [Concomitant]
  6. THEO-DUR [Concomitant]
  7. VITAMIN B6 [Concomitant]
  8. VITAMIN B-12 [Concomitant]
  9. PROCRIT [Concomitant]

REACTIONS (1)
  - PNEUMONIA [None]
